FAERS Safety Report 6796902 (Version 3)
Quarter: 2020Q3

REPORT INFORMATION
  Report Type: Report from Study
  Country: US (occurrence: US)
  Receive Date: 20081027
  Receipt Date: 20081219
  Transmission Date: 20201105
  Serious: Yes (Hospitalization)
  Sender: FDA-Public Use
  Company Number: US-WYE-H06484408

PATIENT
  Age: 58 Year
  Sex: Female
  Weight: 95.61 kg

DRUGS (8)
  1. OMEPRAZOLE. [Concomitant]
     Active Substance: OMEPRAZOLE
     Indication: DYSPEPSIA
     Dosage: NOT PROVIDED
     Dates: start: 20080826
  2. MITOXANTRONE HYDROCHLORIDE. [Suspect]
     Active Substance: MITOXANTRONE HYDROCHLORIDE
     Indication: B-CELL LYMPHOMA
     Route: 042
     Dates: start: 20080603
  3. VITAMINS NOS [Concomitant]
     Active Substance: VITAMINS
     Indication: MEDICAL DIET
     Dosage: NOT PROVIDED
     Dates: start: 20080307
  4. LORAZEPAM. [Concomitant]
     Active Substance: LORAZEPAM
     Indication: NAUSEA
     Dosage: PRN, DOSE NOT PROVIDED
     Dates: start: 20080603
  5. MOMETASONE FUROATE. [Concomitant]
     Active Substance: MOMETASONE FUROATE
     Indication: RHINITIS ALLERGIC
     Dosage: NOT PROVIDED
     Dates: start: 20040420
  6. DEXAMETHASONE. [Suspect]
     Active Substance: DEXAMETHASONE
     Indication: B-CELL LYMPHOMA
     Dosage: DAILY FOR 5 DAYS, EVERY 21 DAYS
     Route: 048
     Dates: start: 20080603
  7. RITUXAN [Suspect]
     Active Substance: RITUXIMAB
     Indication: B-CELL LYMPHOMA
     Route: 042
     Dates: start: 20080603
  8. FLUDARABINE [Suspect]
     Active Substance: FLUDARABINE PHOSPHATE
     Indication: B-CELL LYMPHOMA
     Dosage: 47 MG DAILY FOR 3 DAYS, EVERY 21 DAYS
     Route: 042
     Dates: start: 20080603

REACTIONS (1)
  - Febrile neutropenia [Recovered/Resolved]

NARRATIVE: CASE EVENT DATE: 20081017
